FAERS Safety Report 5332313-3 (Version None)
Quarter: 2007Q2

REPORT INFORMATION
  Report Type: 
  Country: None (occurrence: None)
  Receive Date: 20070521
  Receipt Date: 20070521
  Transmission Date: 20071010
  Serious: No
  Sender: FDA-Public Use
  Company Number: None

PATIENT
  Age: 43 Year
  Sex: Male

DRUGS (1)
  1. TUBERCULIN, PURIFIED PROTEIN DERIVATIVE [Suspect]
     Indication: TUBERCULIN TEST
     Dosage: 0.1 ML ONCE INTRADERM
     Route: 023
     Dates: start: 20070418

REACTIONS (1)
  - FLUSHING [None]
